FAERS Safety Report 24242947 (Version 1)
Quarter: 2024Q3

REPORT INFORMATION
  Report Type: Spontaneous
  Country: US (occurrence: None)
  Receive Date: 20240822
  Receipt Date: 20240822
  Transmission Date: 20241017
  Serious: No
  Sender: Public
  Company Number: None

PATIENT
  Sex: Female

DRUGS (17)
  1. QULIPTA [Suspect]
     Active Substance: ATOGEPANT
     Indication: Migraine
     Dosage: OTHER QUANTITY : 1 TABLET(S);?FREQUENCY : DAILY;?
     Route: 048
     Dates: start: 20240617, end: 20240810
  2. ResMed CPAP machine [Concomitant]
  3. ALLEGRA-D [Concomitant]
     Active Substance: FEXOFENADINE HYDROCHLORIDE\PSEUDOEPHEDRINE HYDROCHLORIDE
  4. Buproprion XL [Concomitant]
  5. Paroxeine [Concomitant]
  6. Cycobenzaprine [Concomitant]
  7. AZELASTINE [Concomitant]
  8. Albuterol [Concomitant]
  9. RIZATRIPTAN [Concomitant]
     Active Substance: RIZATRIPTAN
  10. FIORICET [Concomitant]
     Active Substance: ACETAMINOPHEN\BUTALBITAL\CAFFEINE
  11. Flintstones Complete chewable [Concomitant]
  12. VIT D3 [Concomitant]
  13. MAGNESIUM [Concomitant]
  14. Vit B-12 [Concomitant]
  15. COLACE [Concomitant]
     Active Substance: DOCUSATE SODIUM
  16. SENOKOT-S [Concomitant]
     Active Substance: DOCUSATE SODIUM\SENNOSIDES
  17. ACIDOPHILUS PROBIOTIC [Concomitant]

REACTIONS (4)
  - Constipation [None]
  - Depression [None]
  - Loss of personal independence in daily activities [None]
  - Therapy cessation [None]

NARRATIVE: CASE EVENT DATE: 20240809
